FAERS Safety Report 4557818-4 (Version None)
Quarter: 2005Q1

REPORT INFORMATION
  Report Type: 
  Country: None (occurrence: None)
  Receive Date: 20050118
  Receipt Date: 20041230
  Transmission Date: 20050727
  Serious: Yes (Hospitalization)
  Sender: FDA-Public Use
  Company Number: 105758ISR

PATIENT
  Age: 25 Year
  Sex: Male

DRUGS (11)
  1. VINCRISTINE [Suspect]
     Indication: HODGKIN'S DISEASE
     Dosage: 2 MILLIGRAM
     Route: 042
     Dates: start: 20020325, end: 20020819
  2. VINCRISTINE [Suspect]
     Indication: HODGKIN'S DISEASE
     Dosage: 2 MILLIGRAM
     Route: 042
  3. DOXORUBICIN HCL [Suspect]
     Indication: HODGKIN'S DISEASE
     Route: 042
     Dates: start: 20020318, end: 20020809
  4. DOXORUBICIN HCL [Suspect]
     Indication: HODGKIN'S DISEASE
     Route: 042
  5. BLEOMYCIN [Suspect]
     Indication: HODGKIN'S DISEASE
     Dosage: 18 MILLIGRAM
     Route: 042
     Dates: start: 20020325, end: 20020816
  6. BLEOMYCIN [Suspect]
     Indication: HODGKIN'S DISEASE
     Dosage: 18 MILLIGRAM
     Route: 042
  7. CYCLOPHOSPHAMIDE [Suspect]
     Indication: HODGKIN'S DISEASE
     Route: 042
     Dates: start: 20020318, end: 20020809
  8. CYCLOPHOSPHAMIDE [Suspect]
     Indication: HODGKIN'S DISEASE
     Route: 042
  9. PROCARBAZINE HYDROCHLORIDE [Suspect]
     Indication: HODGKIN'S DISEASE
     Dosage: 150 MILLIGRAM
     Route: 048
     Dates: start: 20020319, end: 20020816
  10. PROCARBAZINE HYDROCHLORIDE [Suspect]
     Indication: HODGKIN'S DISEASE
     Dosage: 150 MILLIGRAM
     Route: 048
  11. ETOPOSIDE [Suspect]
     Indication: HODGKIN'S DISEASE
     Route: 042
     Dates: start: 20020318, end: 20020811

REACTIONS (5)
  - ACUTE MYELOID LEUKAEMIA [None]
  - ASTHENIA [None]
  - HAEMOGLOBIN DECREASED [None]
  - PLATELET COUNT DECREASED [None]
  - WEIGHT DECREASED [None]
